FAERS Safety Report 4811871-9 (Version None)
Quarter: 2005Q4

REPORT INFORMATION
  Report Type: 
  Country: None (occurrence: None)
  Receive Date: 20051028
  Receipt Date: 20041012
  Transmission Date: 20060501
  Serious: No
  Sender: FDA-Public Use
  Company Number: US-GLAXOSMITHKLINE-A0529538A

PATIENT
  Age: 72 Year
  Sex: Female

DRUGS (3)
  1. ADVAIR DISKUS 100/50 [Suspect]
     Indication: EMPHYSEMA
     Dosage: 1PUFF TWICE PER DAY
     Route: 055
  2. LIPITOR [Concomitant]
  3. SPIRIVA [Concomitant]

REACTIONS (3)
  - CANDIDIASIS [None]
  - DEHYDRATION [None]
  - DYSPHONIA [None]
